FAERS Safety Report 24292280 (Version 1)
Quarter: 2024Q3

REPORT INFORMATION
  Report Type: Spontaneous
  Country: US (occurrence: None)
  Receive Date: 20240906
  Receipt Date: 20240906
  Transmission Date: 20241017
  Serious: Yes (Death)
  Sender: Public
  Company Number: None

PATIENT
  Age: 77 Year
  Sex: Male

DRUGS (17)
  1. REVLIMID [Suspect]
     Active Substance: LENALIDOMIDE
     Indication: Plasma cell myeloma
     Dosage: 10 MG 21 DAYS ON 7 OFF ORAL ?
     Route: 048
     Dates: start: 20230207, end: 20240723
  2. ACYCLOVIR [Concomitant]
     Active Substance: ACYCLOVIR
  3. ATORVASTATIN [Concomitant]
     Active Substance: ATORVASTATIN
  4. CARVEDILOL [Concomitant]
     Active Substance: CARVEDILOL
  5. DEXAMETHASONE [Concomitant]
     Active Substance: DEXAMETHASONE
  6. ELIQUIS [Concomitant]
     Active Substance: APIXABAN
  7. ZOFRAN [Concomitant]
     Active Substance: ONDANSETRON HYDROCHLORIDE
  8. Oxycontin 10mg [Concomitant]
  9. RAMIPRIL [Concomitant]
     Active Substance: RAMIPRIL
  10. SINGULAIR [Concomitant]
     Active Substance: MONTELUKAST SODIUM
  11. ASPIRIN [Concomitant]
     Active Substance: ASPIRIN
  12. TAMSULOSIN [Concomitant]
     Active Substance: TAMSULOSIN
  13. FOLIC ACID [Concomitant]
     Active Substance: FOLIC ACID
  14. XTAMPZA ER [Concomitant]
     Active Substance: OXYCODONE
  15. Digoxin 250 mcg [Concomitant]
  16. METOPROLOL [Concomitant]
     Active Substance: METOPROLOL
  17. OXYCODONE [Concomitant]
     Active Substance: OXYCODONE

REACTIONS (1)
  - Death [None]

NARRATIVE: CASE EVENT DATE: 20240906
